FAERS Safety Report 25723699 (Version 2)
Quarter: 2025Q3

REPORT INFORMATION
  Report Type: Spontaneous
  Country: JP (occurrence: JP)
  Receive Date: 20250825
  Receipt Date: 20250917
  Transmission Date: 20251021
  Serious: Yes (Disabling)
  Sender: NOVARTIS
  Company Number: JP-002147023-NVSJ2025JP008412

PATIENT
  Age: 85 Year
  Sex: Male

DRUGS (6)
  1. ENTRESTO [Suspect]
     Active Substance: SACUBITRIL\VALSARTAN
     Indication: Hypertension
     Route: 048
  2. REXULTI [Suspect]
     Active Substance: BREXPIPRAZOLE
     Indication: Dementia Alzheimer^s type
     Route: 048
     Dates: start: 20250428, end: 20250704
  3. REXULTI [Concomitant]
     Active Substance: BREXPIPRAZOLE
     Indication: Dementia Alzheimer^s type
     Route: 048
     Dates: start: 20250328, end: 20250427
  4. REXULTI [Concomitant]
     Active Substance: BREXPIPRAZOLE
     Route: 048
     Dates: start: 20250801
  5. REXULTI [Concomitant]
     Active Substance: BREXPIPRAZOLE
     Route: 048
     Dates: start: 20250901
  6. MEMANTINE HYDROCHLORIDE [Concomitant]
     Active Substance: MEMANTINE HYDROCHLORIDE
     Indication: Product used for unknown indication
     Route: 048
     Dates: end: 202507

REACTIONS (2)
  - Dyskinesia [Recovered/Resolved with Sequelae]
  - Gait disturbance [Recovered/Resolved]

NARRATIVE: CASE EVENT DATE: 20250601
